FAERS Safety Report 10210203 (Version 1)
Quarter: 2014Q2

REPORT INFORMATION
  Report Type: Other
  Country: GB (occurrence: GB)
  Receive Date: 20140602
  Receipt Date: 20140602
  Transmission Date: 20141212
  Serious: Yes (Other)
  Sender: FDA-Public Use
  Company Number: GB-TARO PHARMACEUTICALS U.S.A., INC-2014SUN01193

PATIENT
  Age: 70 Year
  Sex: Female
  Weight: 54.89 kg

DRUGS (3)
  1. CARBAMAZEPINE [Suspect]
     Indication: PAIN
     Route: 065
     Dates: start: 20140502
  2. ESTRADIOL [Concomitant]
     Dates: start: 20140411
  3. LANSOPRAZOLE [Concomitant]
     Dates: start: 20140122

REACTIONS (4)
  - Disorientation [Unknown]
  - Balance disorder [Unknown]
  - Nausea [Unknown]
  - Off label use [Unknown]
